FAERS Safety Report 23683464 (Version 1)
Quarter: 2024Q1

REPORT INFORMATION
  Report Type: Spontaneous
  Country: US (occurrence: US)
  Receive Date: 20240328
  Receipt Date: 20240328
  Transmission Date: 20240409
  Serious: No
  Sender: FDA-Public Use
  Company Number: US-BAUSCH-BL-2024-005091

PATIENT
  Sex: Male

DRUGS (1)
  1. NASALCROM [Suspect]
     Active Substance: CROMOLYN SODIUM
     Indication: Product used for unknown indication
     Dosage: NASAL ALLERGY SYMPTOM CONTROLLER SPRAY
     Route: 045

REACTIONS (1)
  - Nasal dryness [Unknown]
